FAERS Safety Report 6081685-3 (Version None)
Quarter: 2009Q1

REPORT INFORMATION
  Report Type: 
  Country: None (occurrence: None)
  Receive Date: 20090123
  Receipt Date: 20071204
  Transmission Date: 20090719
  Serious: Yes (Hospitalization)
  Sender: FDA-Public Use
  Company Number: WAES 0712USA01511

PATIENT
  Age: 72 Year
  Sex: Female

DRUGS (15)
  1. TAB DECADRON (DEXAMETHASONE) 4MG [Suspect]
     Indication: MULTIPLE MYELOMA
     Dosage: 20 MG/DAYS ON/DAYS
     Dates: end: 20070201
  2. REVLIMID [Suspect]
     Indication: MULTIPLE MYELOMA
     Dosage: 10 MG UNK PO
     Route: 048
     Dates: start: 20060822, end: 20070201
  3. REVLIMID [Suspect]
     Indication: MULTIPLE MYELOMA
     Dosage: 10 MG UNK PO
     Route: 048
     Dates: start: 20070501
  4. . [Concomitant]
  5. HYZAAR [Concomitant]
  6. PRILOSEC [Concomitant]
  7. THERAGRAN-M [Concomitant]
  8. ZOLOFT [Concomitant]
  9. CALCIUM (UNSPECIFIED) [Concomitant]
  10. ESTRADIOL [Concomitant]
  11. FENTANYL-25 [Concomitant]
  12. NORTRIPTYLINE HCL [Concomitant]
  13. OXYCODONE 2.5/APAP 500 [Concomitant]
  14. POTASSIUM CHLORIDE [Concomitant]
  15. ASPIRIN [Concomitant]

REACTIONS (1)
  - PATHOLOGICAL FRACTURE [None]
